FAERS Safety Report 4675634-X (Version None)
Quarter: 2005Q2

REPORT INFORMATION
  Report Type: 
  Country: None (occurrence: None)
  Receive Date: 20050525
  Receipt Date: 20050518
  Transmission Date: 20051028
  Serious: Yes (Death)
  Sender: FDA-Public Use
  Company Number: 2005-05-0006

PATIENT
  Sex: Male

DRUGS (11)
  1. BECLOMETHASONE DIPROPIONATE [Suspect]
  2. FUROSEMIDE [Suspect]
     Dosage: 80 MG QAM
  3. SPIRIVA [Suspect]
     Dosage: INHALATION
     Route: 055
  4. ALLOPURINOL [Suspect]
     Dosage: 200 MG
  5. DIGOXIN [Suspect]
     Dosage: 250 MG
  6. PANTOPRAZOLE [Suspect]
     Dosage: 20 MG
  7. PERINDOPRIL [Suspect]
     Dosage: 4 MG
  8. SIMVASTATIN [Suspect]
     Dosage: 40 MG QHS
  9. WARFARIN SODIUM [Suspect]
  10. VENTOLIN [Suspect]
     Route: 055
  11. PARACETAMOL [Suspect]

REACTIONS (1)
  - AORTIC DISSECTION [None]
